FAERS Safety Report 13656058 (Version 1)
Quarter: 2017Q2

REPORT INFORMATION
  Report Type: Report from Study
  Country: US (occurrence: US)
  Receive Date: 20170615
  Receipt Date: 20170615
  Transmission Date: 20170830
  Serious: Yes (Death)
  Sender: FDA-Public Use
  Company Number: US-TORRENT-00002972

PATIENT
  Age: 36 Year
  Sex: Male

DRUGS (3)
  1. CITALOPRAM [Suspect]
     Active Substance: CITALOPRAM HYDROBROMIDE
  2. IBUPROFEN. [Suspect]
     Active Substance: IBUPROFEN
  3. DOXEPIN [Suspect]
     Active Substance: DOXEPIN

REACTIONS (1)
  - Toxicity to various agents [Fatal]
